FAERS Safety Report 5886279-8 (Version None)
Quarter: 2008Q3

REPORT INFORMATION
  Report Type: 
  Country: None (occurrence: None)
  Receive Date: 20080917
  Receipt Date: 20080908
  Transmission Date: 20090109
  Serious: Yes (Death, Hospitalization)
  Sender: FDA-Public Use
  Company Number: A0719006A

PATIENT
  Age: 66 Year
  Sex: Male
  Weight: 86.4 kg

DRUGS (8)
  1. AVANDIA [Suspect]
     Dosage: 4MG SEE DOSAGE TEXT
     Route: 048
     Dates: start: 19990922, end: 20060221
  2. AVANDAMET [Suspect]
     Dosage: 4MG TWICE PER DAY
     Route: 048
     Dates: start: 20051004, end: 20051017
  3. AMARYL [Concomitant]
  4. GLUCOPHAGE [Concomitant]
  5. TRIAVIL [Concomitant]
  6. MAXZIDE [Concomitant]
  7. HYTRIN [Concomitant]
  8. PRAVACHOL [Concomitant]

REACTIONS (1)
  - MYOCARDIAL INFARCTION [None]
